FAERS Safety Report 6106252-4 (Version None)
Quarter: 2009Q1

REPORT INFORMATION
  Report Type: 
  Country: None (occurrence: None)
  Receive Date: 20090304
  Receipt Date: 20090224
  Transmission Date: 20090719
  Serious: Yes (Other)
  Sender: FDA-Public Use
  Company Number: 2008AL010616

PATIENT
  Age: 59 Year
  Sex: Male

DRUGS (20)
  1. DIGOXIN [Suspect]
     Dosage: 0.125MG DAILY, PO
     Route: 048
  2. LANTUS [Concomitant]
  3. COREG [Concomitant]
  4. KLOR-CON [Concomitant]
  5. LASIX [Concomitant]
  6. LISINORIL [Concomitant]
  7. FAMOTIDINE [Concomitant]
  8. AMYRYL [Concomitant]
  9. AMBIEN [Concomitant]
  10. ASPIRIN [Concomitant]
  11. CELEBREX [Concomitant]
  12. PEPCID [Concomitant]
  13. LASIMIDE [Concomitant]
  14. PRINIVIL [Concomitant]
  15. SOBA ANALEGESIC [Concomitant]
  16. HUMALOG [Concomitant]
  17. NITROLINGUAL [Concomitant]
  18. TYLENOL (CAPLET) [Concomitant]
  19. NITROGLYCERIN SPRAY [Concomitant]
  20. TRAMADOL HCL [Concomitant]

REACTIONS (13)
  - CARDIAC FAILURE CONGESTIVE [None]
  - COLON ADENOMA [None]
  - COLONIC POLYP [None]
  - CORONARY ARTERY DISEASE [None]
  - DYSPNOEA PAROXYSMAL NOCTURNAL [None]
  - FATIGUE [None]
  - GLYCOSYLATED HAEMOGLOBIN INCREASED [None]
  - KNEE OPERATION [None]
  - LYMPHOID TISSUE HYPERPLASIA [None]
  - MULTIPLE INJURIES [None]
  - RED BLOOD CELL COUNT DECREASED [None]
  - VENTRICULAR ARRHYTHMIA [None]
  - WHITE BLOOD CELL COUNT INCREASED [None]
